FAERS Safety Report 9110148 (Version 3)
Quarter: 2013Q2

REPORT INFORMATION
  Report Type: Spontaneous
  Country: IT (occurrence: IT)
  Receive Date: 20130222
  Receipt Date: 20130408
  Transmission Date: 20140414
  Serious: Yes (Hospitalization)
  Sender: FDA-Public Use
  Company Number: IT-ROCHE-1193620

PATIENT
  Age: 23 Year
  Sex: Female

DRUGS (2)
  1. VALIUM [Suspect]
     Indication: INTENTIONAL SELF-INJURY
     Dosage: 5 MG/ML ORAL SOLUTION
     Route: 048
     Dates: start: 20130217, end: 20130217
  2. RISPERDAL [Suspect]
     Indication: INTENTIONAL SELF-INJURY
     Route: 048
     Dates: start: 20130217, end: 20130217

REACTIONS (3)
  - Hypotension [Recovered/Resolved]
  - Intentional self-injury [Recovered/Resolved]
  - Tachycardia [Recovered/Resolved]
